FAERS Safety Report 6650002-X (Version None)
Quarter: 2010Q1

REPORT INFORMATION
  Report Type: 
  Country: None (occurrence: None)
  Receive Date: 20100325
  Receipt Date: 20100318
  Transmission Date: 20100710
  Serious: Yes (Other)
  Sender: FDA-Public Use
  Company Number: BR-BAYER-201012533LA

PATIENT
  Age: 21 Year
  Sex: Female
  Weight: 53 kg

DRUGS (2)
  1. YASMIN [Suspect]
     Indication: ABDOMINAL PAIN
     Route: 048
     Dates: start: 20070101, end: 20100311
  2. OMEPRAZOLE [Concomitant]
     Indication: GASTRITIS
     Dosage: TOTAL DAILY DOSE: 20 MG  UNIT DOSE: 20 MG
     Route: 048

REACTIONS (2)
  - HEPATO-LENTICULAR DEGENERATION [None]
  - LIVER DISORDER [None]
